FAERS Safety Report 8254920 (Version 2)
Quarter: 2012Q4

REPORT INFORMATION
  Report Type: 
  Country: US (occurrence: US)
  Receive Date: 20111118
  Receipt Date: 20120917
  Transmission Date: 20130627
  Serious: Yes (Hospitalization)
  Sender: FDA-Public Use
  Company Number: US-ACTELION-A-US2011-56629

PATIENT
  Age: 43 Year
  Sex: Female

DRUGS (2)
  1. VELETRI [Suspect]
     Indication: PULMONARY ARTERIAL HYPERTENSION
     Dosage: 27 ng/kg, per min
     Route: 042
     Dates: start: 20110112
  2. COUMADIN [Concomitant]

REACTIONS (3)
  - Cough [Unknown]
  - Device occlusion [Unknown]
  - Device malfunction [Unknown]
